FAERS Safety Report 5814152-X (Version None)
Quarter: 2008Q3

REPORT INFORMATION
  Report Type: 
  Country: None (occurrence: None)
  Receive Date: 20080717
  Receipt Date: 20080708
  Transmission Date: 20090109
  Serious: Yes (Other)
  Sender: FDA-Public Use
  Company Number: BR-PFIZER INC-2008057787

PATIENT
  Sex: Female
  Weight: 69 kg

DRUGS (3)
  1. DEPO-PROVERA SUSPENSION/INJ [Suspect]
     Indication: CONTRACEPTION
     Dates: start: 20050101, end: 20050101
  2. DEPO-PROVERA SUSPENSION/INJ [Suspect]
     Dates: start: 20080708, end: 20080708
  3. ANALGESICS [Concomitant]
     Route: 065

REACTIONS (4)
  - AMENORRHOEA [None]
  - INAPPROPRIATE SCHEDULE OF DRUG ADMINISTRATION [None]
  - METRORRHAGIA [None]
  - OVARIAN CYST [None]
